FAERS Safety Report 4619685-X (Version None)
Quarter: 2005Q1

REPORT INFORMATION
  Report Type: 
  Country: None (occurrence: None)
  Receive Date: 20050317
  Receipt Date: 20050317
  Transmission Date: 20050727
  Serious: No
  Sender: FDA-Public Use
  Company Number: None

PATIENT
  Age: 48 Year
  Sex: Female
  Weight: 70.3075 kg

DRUGS (5)
  1. ADVAIR DISKUS 250/50 [Suspect]
     Indication: ASTHMA
     Dosage: 250 MG     1 TIME/DAY   BUCCAL
     Route: 002
     Dates: start: 20040922, end: 20041217
  2. CENTRUM [Concomitant]
  3. CALCIUM GLUCONATE [Concomitant]
  4. FERROUS SULFATE TAB [Concomitant]
  5. CRYSELLE -BIRTH CONTROL PILLS- [Concomitant]

REACTIONS (1)
  - VISUAL ACUITY REDUCED [None]
